FAERS Safety Report 4657296-0 (Version None)
Quarter: 2005Q2

REPORT INFORMATION
  Report Type: 
  Country: None (occurrence: None)
  Receive Date: 20050506
  Receipt Date: 20050429
  Transmission Date: 20051028
  Serious: Yes (Hospitalization, Other)
  Sender: FDA-Public Use
  Company Number: KII-2005-0016424

PATIENT
  Age: 35 Year
  Sex: Male

DRUGS (6)
  1. MORPHINE SULFATE [Suspect]
     Indication: DRUG USE FOR UNKNOWN INDICATION
     Dosage: ORAL
     Route: 048
  2. COCAINE (COCAINE) [Suspect]
     Indication: DRUG USE FOR UNKNOWN INDICATION
  3. HEROIN (DIAMORPHINE) [Suspect]
     Indication: DRUG USE FOR UNKNOWN INDICATION
  4. IMIPRAMINE [Suspect]
     Indication: DRUG USE FOR UNKNOWN INDICATION
     Dosage: ORAL
     Route: 048
  5. RANITIDINE [Suspect]
     Indication: DRUG USE FOR UNKNOWN INDICATION
     Dosage: ORAL
     Route: 048
  6. OTHER HYPNOTICS AND SEDATIVES (OTHER HYPNOTICS AND SEDATIVES) [Suspect]
     Indication: DRUG USE FOR UNKNOWN INDICATION
     Dosage: ORAL
     Route: 048

REACTIONS (6)
  - COMA [None]
  - MULTIPLE DRUG OVERDOSE [None]
  - OXYGEN SATURATION DECREASED [None]
  - POLYSUBSTANCE ABUSE [None]
  - RESPIRATORY DISTRESS [None]
  - SOMNOLENCE [None]
